FAERS Safety Report 14459619 (Version 1)
Quarter: 2018Q1

REPORT INFORMATION
  Report Type: Spontaneous
  Country: US (occurrence: US)
  Receive Date: 20180129
  Receipt Date: 20180129
  Transmission Date: 20180509
  Serious: Yes (Death)
  Sender: FDA-Public Use
  Company Number: None

PATIENT
  Sex: Male

DRUGS (17)
  1. AMLODIPINE [Concomitant]
     Active Substance: AMLODIPINE BESYLATE
  2. PANTOPRAZOLE [Concomitant]
     Active Substance: PANTOPRAZOLE
  3. SOD POLY SUL POW [Concomitant]
  4. VORICONAZOLE. [Concomitant]
     Active Substance: VORICONAZOLE
  5. BIOTIN [Concomitant]
     Active Substance: BIOTIN
  6. BLINK TEARS [Concomitant]
     Active Substance: POLYETHYLENE GLYCOL 400
  7. MONTELUCAST [Concomitant]
     Active Substance: MONTELUKAST SODIUM
  8. ACYCLOVIR. [Concomitant]
     Active Substance: ACYCLOVIR
  9. FOLIC ACID. [Concomitant]
     Active Substance: FOLIC ACID
  10. PREDNISONE. [Concomitant]
     Active Substance: PREDNISONE
  11. MAGNESIUM [Concomitant]
     Active Substance: MAGNESIUM
  12. CENTRUM [Concomitant]
     Active Substance: VITAMINS
  13. CARVEDILOL. [Concomitant]
     Active Substance: CARVEDILOL
  14. ROSUVASTATIN. [Concomitant]
     Active Substance: ROSUVASTATIN
  15. TACROLIMUS. [Suspect]
     Active Substance: TACROLIMUS
     Indication: STEM CELL TRANSPLANT
     Route: 048
     Dates: start: 20171003
  16. OMEGA-3 ACIDS [Concomitant]
     Active Substance: OMEGA-3 FATTY ACIDS
  17. AZIT HROMYCIN [Concomitant]

REACTIONS (1)
  - Death [None]
